FAERS Safety Report 20568667 (Version 5)
Quarter: 2023Q2

REPORT INFORMATION
  Report Type: Report from Study
  Country: GB (occurrence: GB)
  Receive Date: 20220308
  Receipt Date: 20230626
  Transmission Date: 20230721
  Serious: Yes (Life-Threatening, Hospitalization, Other)
  Sender: FDA-Public Use
  Company Number: GB-ROCHE-2981998

PATIENT
  Age: 70 Year
  Sex: Male
  Weight: 80.6 kg

DRUGS (17)
  1. CARBOPLATIN [Suspect]
     Active Substance: CARBOPLATIN
     Indication: Small cell lung cancer extensive stage
     Dosage: 400 MG
     Route: 065
     Dates: start: 20211130
  2. ATEZOLIZUMAB [Suspect]
     Active Substance: ATEZOLIZUMAB
     Indication: Small cell lung cancer extensive stage
     Dosage: ON 30/NOV/2021, STARTED AND ENDED MOST RECENT DOSE OF ATEZOLIZUMAB PRIOR TO AE IS 1200 MG
     Route: 041
     Dates: start: 20211130
  3. ETOPOSIDE [Suspect]
     Active Substance: ETOPOSIDE
     Indication: Small cell lung cancer extensive stage
     Dosage: 200 MG EVERY 5 DAYS
     Route: 042
     Dates: start: 20211130, end: 20211202
  4. ETOPOSIDE [Suspect]
     Active Substance: ETOPOSIDE
     Dosage: 100 MG
     Route: 048
     Dates: start: 20211201
  5. AMOXICILLIN [Concomitant]
     Active Substance: AMOXICILLIN
     Dosage: 3X/DAY
     Route: 065
  6. ATEZOLIZUMAB [Concomitant]
     Active Substance: ATEZOLIZUMAB
     Dosage: UNK
     Route: 041
  7. ATEZOLIZUMAB [Concomitant]
     Active Substance: ATEZOLIZUMAB
     Route: 041
  8. DEXAMETHASONE [Concomitant]
     Active Substance: DEXAMETHASONE
     Indication: Prophylaxis
     Dosage: EVERY 5 DAY
     Route: 065
     Dates: start: 20211130, end: 20211202
  9. DEXAMETHASONE [Concomitant]
     Active Substance: DEXAMETHASONE
     Dosage: EVERY 5 DAY
     Route: 065
     Dates: start: 20220108, end: 20220110
  10. DEXAMETHASONE [Concomitant]
     Active Substance: DEXAMETHASONE
     Dosage: EVERY 5 DAY
     Dates: start: 20220128, end: 20220131
  11. METOCLOPRAMIDE [Concomitant]
     Active Substance: METOCLOPRAMIDE
     Dosage: 1 DF, AS NEEDED
     Route: 065
     Dates: start: 20211130
  12. METOCLOPRAMIDE [Concomitant]
     Active Substance: METOCLOPRAMIDE
     Dosage: 1 DF, AS NEEDED
     Route: 065
     Dates: start: 20220108
  13. METOCLOPRAMIDE [Concomitant]
     Active Substance: METOCLOPRAMIDE
     Dosage: UNK1 DF, AS NEEDED
     Dates: start: 20220128
  14. ONDANSETRON [Concomitant]
     Active Substance: ONDANSETRON
     Dosage: 2X/DAY
     Route: 065
     Dates: start: 20211130, end: 20211202
  15. ONDANSETRON [Concomitant]
     Active Substance: ONDANSETRON
     Dosage: 2X/DAY
     Route: 065
     Dates: start: 20220108, end: 20220110
  16. ONDANSETRON [Concomitant]
     Active Substance: ONDANSETRON
     Dosage: 2X/DAY
     Dates: start: 20220128, end: 20220131
  17. FORTISIP COMPACT PROTEIN [Concomitant]

REACTIONS (3)
  - Hypokalaemia [Recovering/Resolving]
  - Neutropenic sepsis [Recovered/Resolved]
  - Hypomagnesaemia [Recovered/Resolved]

NARRATIVE: CASE EVENT DATE: 20211207
